FAERS Safety Report 4387086-8 (Version None)
Quarter: 2004Q2

REPORT INFORMATION
  Report Type: 
  Country: None (occurrence: None)
  Receive Date: 20040630
  Receipt Date: 20040305
  Transmission Date: 20050107
  Serious: Yes (Hospitalization)
  Sender: FDA-Public Use
  Company Number: US-GLAXOSMITHKLINE-A0501421A

PATIENT
  Age: 82 Year
  Sex: Female

DRUGS (1)
  1. ADVAIR HFA [Suspect]
     Route: 055

REACTIONS (2)
  - CHEST PAIN [None]
  - DYSPNOEA EXACERBATED [None]
